FAERS Safety Report 24618482 (Version 1)
Quarter: 2024Q4

REPORT INFORMATION
  Report Type: Spontaneous
  Country: US (occurrence: None)
  Receive Date: 20241113
  Receipt Date: 20241113
  Transmission Date: 20250114
  Serious: Yes (Hospitalization)
  Sender: Public
  Company Number: None

PATIENT
  Age: 86 Year
  Sex: Male
  Weight: 72 kg

DRUGS (2)
  1. PANTOPRAZOLE [Suspect]
     Active Substance: PANTOPRAZOLE
     Indication: Barrett^s oesophagus
     Dosage: FREQUENCY : DAILY;?
     Route: 048
  2. ELIQUIS [Suspect]
     Active Substance: APIXABAN

REACTIONS (9)
  - Oesophageal haemorrhage [None]
  - Treatment noncompliance [None]
  - Anaemia [None]
  - Pain [None]
  - Discomfort [None]
  - Red blood cell transfusion [None]
  - Gastrointestinal ulcer [None]
  - Product use issue [None]
  - Therapy interrupted [None]

NARRATIVE: CASE EVENT DATE: 20240629
